FAERS Safety Report 11562330 (Version 3)
Quarter: 2015Q4

REPORT INFORMATION
  Report Type: Spontaneous
  Country: US (occurrence: US)
  Receive Date: 20150928
  Receipt Date: 20151014
  Transmission Date: 20160304
  Serious: Yes (Death, Life-Threatening, Hospitalization, Other)
  Sender: FDA-Public Use
  Company Number: US-TEVA-596901USA

PATIENT
  Age: 32 Year
  Sex: Female

DRUGS (4)
  1. OXYCODONE [Concomitant]
     Active Substance: OXYCODONE
  2. MORPHINE [Concomitant]
     Active Substance: MORPHINE
  3. AMFETAMINE [Concomitant]
     Active Substance: AMPHETAMINE
  4. QUETIAPINE FUMARATE. [Suspect]
     Active Substance: QUETIAPINE FUMARATE
     Indication: PRODUCT USED FOR UNKNOWN INDICATION

REACTIONS (7)
  - Brain oedema [Fatal]
  - Unresponsive to stimuli [Unknown]
  - Toxicity to various agents [Fatal]
  - Acute kidney injury [Fatal]
  - Metabolic acidosis [Unknown]
  - Electrocardiogram QRS complex prolonged [Unknown]
  - Rhabdomyolysis [Fatal]

NARRATIVE: CASE EVENT DATE: 20140317
